FAERS Safety Report 5802109-4 (Version None)
Quarter: 2008Q3

REPORT INFORMATION
  Report Type: 
  Country: None (occurrence: None)
  Receive Date: 20080707
  Receipt Date: 20080626
  Transmission Date: 20090109
  Serious: Yes (Hospitalization)
  Sender: FDA-Public Use
  Company Number: PHHY2008JP11464

PATIENT
  Age: 82 Year
  Sex: Male

DRUGS (3)
  1. VALSARTAN [Suspect]
  2. AMLODIPINE BESYLATE [Suspect]
  3. BENIDIPINE HYDROCHLORIDE [Concomitant]

REACTIONS (5)
  - CHEST X-RAY ABNORMAL [None]
  - DYSPNOEA [None]
  - LUNG INJURY [None]
  - LYMPHOCYTE STIMULATION TEST [None]
  - PYREXIA [None]
